FAERS Safety Report 10230633 (Version 1)
Quarter: 2014Q2

REPORT INFORMATION
  Report Type: Spontaneous
  Country: DE (occurrence: DE)
  Receive Date: 20140611
  Receipt Date: 20140611
  Transmission Date: 20141212
  Serious: Yes (Other)
  Sender: FDA-Public Use
  Company Number: DE-PFIZER INC-2014153801

PATIENT
  Age: 1 Day
  Sex: Male
  Weight: 1.66 kg

DRUGS (6)
  1. DOXORUBICIN HCL [Suspect]
     Indication: B-CELL LYMPHOMA
     Dosage: 84 MG, DAILY CYCLIC
     Route: 064
     Dates: start: 20131101, end: 20131116
  2. CYCLOPHOSPHAMIDE [Suspect]
     Indication: B-CELL LYMPHOMA
     Dosage: 1260 MG, DAILY CYCLIC
     Route: 064
     Dates: start: 20131101, end: 20131116
  3. RITUXIMAB [Suspect]
     Indication: B-CELL LYMPHOMA
     Dosage: 630 MG, DAILY CYCLIC
     Route: 064
     Dates: start: 20131013, end: 20131115
  4. VINCRISTINE [Suspect]
     Indication: B-CELL LYMPHOMA
     Dosage: 2 MG, DAILY CYCLIC
     Route: 064
     Dates: start: 20131101, end: 20131116
  5. PREDNISOLONE [Concomitant]
     Indication: B-CELL LYMPHOMA
     Dosage: 100 MG, DAILY
     Route: 064
     Dates: start: 20131101, end: 20131120
  6. NEULASTA [Concomitant]
     Indication: B-CELL LYMPHOMA
     Route: 064

REACTIONS (5)
  - Maternal exposure during pregnancy [Unknown]
  - Anaemia neonatal [Unknown]
  - Granulocytopenia neonatal [Unknown]
  - Inguinal hernia [Recovered/Resolved with Sequelae]
  - Premature baby [Unknown]
